FAERS Safety Report 9588941 (Version 1)
Quarter: 2013Q4

REPORT INFORMATION
  Report Type: Spontaneous
  Country: US (occurrence: US)
  Receive Date: 20131003
  Receipt Date: 20131003
  Transmission Date: 20140711
  Serious: No
  Sender: FDA-Public Use
  Company Number: US-AMGEN-USASP2012067256

PATIENT
  Sex: Female

DRUGS (13)
  1. ENBREL [Suspect]
     Indication: PRODUCT USED FOR UNKNOWN INDICATION
     Dosage: 25 MG, 2 TIMES/WK
  2. HYDROCODON [Concomitant]
     Dosage: UNK
  3. HOMATROPIN                         /00125401/ [Concomitant]
     Dosage: UNK
  4. LISINOPRIL [Concomitant]
     Dosage: 2.5 MG, UNK
  5. FENOFIBRIC ACID [Concomitant]
     Dosage: 35 MG, UNK
  6. LEVOTHYROXIN [Concomitant]
     Dosage: 100 MUG, UNK
  7. OMEPRAZOL                          /00661201/ [Concomitant]
     Dosage: 20 MG, UNK
  8. NORTRIPTYLIN [Concomitant]
     Dosage: 10 MG, UNK
  9. FLUOXETINE [Concomitant]
     Dosage: 10 MG, UNK
  10. SULINDAC [Concomitant]
     Dosage: 150 MG, UNK
  11. VIT D [Concomitant]
     Dosage: HIGH CAP POTENCY
  12. TUMS                               /00193601/ [Concomitant]
     Dosage: 500 MG, UNK
  13. METFORMIN [Concomitant]
     Dosage: 1000 MG, UNK

REACTIONS (5)
  - Drug ineffective [Unknown]
  - Neck pain [Unknown]
  - Musculoskeletal pain [Unknown]
  - Pain in extremity [Unknown]
  - Arthralgia [Unknown]
